FAERS Safety Report 23697855 (Version 1)
Quarter: 2024Q2

REPORT INFORMATION
  Report Type: Report from Study
  Country: US (occurrence: US)
  Receive Date: 20240402
  Receipt Date: 20240402
  Transmission Date: 20240716
  Serious: Yes (Hospitalization, Other)
  Sender: FDA-Public Use
  Company Number: US-TAKEDA-2024TUS030399

PATIENT
  Age: 6 Year
  Sex: Male

DRUGS (8)
  1. TEDUGLUTIDE [Suspect]
     Active Substance: TEDUGLUTIDE
     Indication: Short-bowel syndrome
     Dosage: 0.72 MILLIGRAM, QD
     Route: 042
     Dates: start: 20200131, end: 20230623
  2. TEDUGLUTIDE [Suspect]
     Active Substance: TEDUGLUTIDE
     Indication: Short-bowel syndrome
     Dosage: 0.72 MILLIGRAM, QD
     Route: 042
     Dates: start: 20200131, end: 20230623
  3. TEDUGLUTIDE [Suspect]
     Active Substance: TEDUGLUTIDE
     Indication: Short-bowel syndrome
     Dosage: 0.72 MILLIGRAM, QD
     Route: 042
     Dates: start: 20200131, end: 20230623
  4. TEDUGLUTIDE [Suspect]
     Active Substance: TEDUGLUTIDE
     Indication: Short-bowel syndrome
     Dosage: 0.72 MILLIGRAM, QD
     Route: 042
     Dates: start: 20200131, end: 20230623
  5. TEDUGLUTIDE [Suspect]
     Active Substance: TEDUGLUTIDE
     Dosage: 0.72 MILLIGRAM, QD
     Route: 042
     Dates: start: 20230818
  6. TEDUGLUTIDE [Suspect]
     Active Substance: TEDUGLUTIDE
     Dosage: 0.72 MILLIGRAM, QD
     Route: 042
     Dates: start: 20230818
  7. TEDUGLUTIDE [Suspect]
     Active Substance: TEDUGLUTIDE
     Dosage: 0.72 MILLIGRAM, QD
     Route: 042
     Dates: start: 20230818
  8. TEDUGLUTIDE [Suspect]
     Active Substance: TEDUGLUTIDE
     Dosage: 0.72 MILLIGRAM, QD
     Route: 042
     Dates: start: 20230818

REACTIONS (2)
  - Pneumonia respiratory syncytial viral [Recovered/Resolved]
  - Gastrointestinal bacterial overgrowth [Recovered/Resolved]

NARRATIVE: CASE EVENT DATE: 20231013
